FAERS Safety Report 21078967 (Version 2)
Quarter: 2022Q3

REPORT INFORMATION
  Report Type: Spontaneous
  Country: US (occurrence: US)
  Receive Date: 20220713
  Receipt Date: 20220804
  Transmission Date: 20221026
  Serious: Yes (Death, Hospitalization)
  Sender: FDA-Public Use
  Company Number: US-AVEO ONCOLOGY-2022-AVEO-US000265

PATIENT

DRUGS (25)
  1. FOTIVDA [Suspect]
     Active Substance: TIVOZANIB HYDROCHLORIDE
     Indication: Renal cell carcinoma
     Dosage: 1.34 MG DAILY FOR 21 DAYS WITH 7 DAYS OFF ( 28-DAY CYCLE)
     Route: 048
     Dates: start: 20220508, end: 20220627
  2. FOTIVDA [Suspect]
     Active Substance: TIVOZANIB HYDROCHLORIDE
     Dosage: 1.34 MG DAILY FOR 21 DAYS WITH 7 DAYS OFF ( 28-DAY CYCLE)
     Route: 048
     Dates: start: 20220508, end: 20220724
  3. AZITHROMYCIN [Concomitant]
     Active Substance: AZITHROMYCIN
  4. CEFDINIR [Concomitant]
     Active Substance: CEFDINIR
  5. DIPHENHYDRAMINE [Concomitant]
     Active Substance: DIPHENHYDRAMINE
  6. ELIQUIS [Concomitant]
     Active Substance: APIXABAN
  7. GABAPENTIN [Concomitant]
     Active Substance: GABAPENTIN
  8. HYDROCORTISONE [Concomitant]
     Active Substance: HYDROCORTISONE
  9. LEVOTHYROXINE [Concomitant]
     Active Substance: LEVOTHYROXINE
  10. DIPHENHYDRAMINE HYDROCHLORIDE\LIDOCAINE HYDROCHLORIDE\NYSTATIN [Concomitant]
     Active Substance: DIPHENHYDRAMINE HYDROCHLORIDE\LIDOCAINE HYDROCHLORIDE\NYSTATIN
  11. METOPROLOL [Concomitant]
     Active Substance: METOPROLOL
  12. MIRTAZAPINE [Concomitant]
     Active Substance: MIRTAZAPINE
  13. NYSTATIN [Concomitant]
     Active Substance: NYSTATIN
  14. ONDANSETRON [Concomitant]
     Active Substance: ONDANSETRON
  15. PREDNISONE [Concomitant]
     Active Substance: PREDNISONE
  16. PROAIR HFA [Concomitant]
     Active Substance: ALBUTEROL SULFATE
  17. CODEINE PHOSPHATE\PROMETHAZINE [Concomitant]
     Active Substance: CODEINE PHOSPHATE\PROMETHAZINE
  18. Tab-A-Vite [Concomitant]
  19. TAMSULOSIN [Concomitant]
     Active Substance: TAMSULOSIN
  20. TYLENOL [Concomitant]
     Active Substance: ACETAMINOPHEN
  21. ZALEPLON [Concomitant]
     Active Substance: ZALEPLON
  22. TOPROL XL [Concomitant]
     Active Substance: METOPROLOL SUCCINATE
  23. ZOFRAN [Concomitant]
     Active Substance: ONDANSETRON HYDROCHLORIDE
  24. PERI-COLACE [Concomitant]
     Active Substance: CASANTHRANOL\DOCUSATE SODIUM
  25. VITAMINS [Concomitant]
     Active Substance: VITAMINS

REACTIONS (4)
  - Death [Fatal]
  - Dyspnoea [Unknown]
  - Dysarthria [Recovered/Resolved]
  - Weight decreased [Not Recovered/Not Resolved]

NARRATIVE: CASE EVENT DATE: 20220706
